FAERS Safety Report 6094024-9 (Version None)
Quarter: 2009Q1

REPORT INFORMATION
  Report Type: 
  Country: None (occurrence: None)
  Receive Date: 20090226
  Receipt Date: 20090216
  Transmission Date: 20090719
  Serious: Yes (Hospitalization, Other)
  Sender: FDA-Public Use
  Company Number: JP-ABBOTT-08P-087-0462987-00

PATIENT
  Sex: Female

DRUGS (8)
  1. FENOFIBRATE [Suspect]
     Indication: HYPERLIPIDAEMIA
     Route: 048
     Dates: start: 20070501, end: 20070701
  2. FENOFIBRATE [Suspect]
     Route: 048
     Dates: start: 20070701, end: 20080328
  3. INDAPAMIDE [Suspect]
     Indication: HYPERTENSION
     Route: 048
     Dates: start: 20080311, end: 20080328
  4. OLMESARTAN MEDOXOMIL [Suspect]
     Indication: HYPERLIPIDAEMIA
     Route: 048
     Dates: start: 20070501, end: 20080328
  5. ROSUVASTATIN CALCIUM [Suspect]
     Indication: DRUG USE FOR UNKNOWN INDICATION
     Route: 048
     Dates: start: 20070501, end: 20070601
  6. ROSUVASTATIN CALCIUM [Suspect]
     Route: 048
     Dates: start: 20070601, end: 20080328
  7. MECOBALAMIN [Suspect]
     Indication: DRUG USE FOR UNKNOWN INDICATION
     Route: 048
     Dates: start: 20071201, end: 20080328
  8. TRICHLORMETHIAZIDE [Suspect]
     Indication: DRUG USE FOR UNKNOWN INDICATION
     Route: 048
     Dates: start: 20070701, end: 20080328

REACTIONS (2)
  - DRUG ERUPTION [None]
  - PYREXIA [None]
